FAERS Safety Report 4498252-5 (Version None)
Quarter: 2004Q3

REPORT INFORMATION
  Report Type: 
  Country: None (occurrence: None)
  Receive Date: 20040927
  Receipt Date: 20040609
  Transmission Date: 20050211
  Serious: No
  Sender: FDA-Public Use
  Company Number: USA040669755

PATIENT
  Age: 36 Year
  Sex: Female

DRUGS (4)
  1. STRATTERA [Suspect]
     Dosage: 40 MG DAY
  2. TRILEPTAL [Concomitant]
  3. DEPAKOTE [Concomitant]
  4. RISPERDAL [Concomitant]

REACTIONS (1)
  - MANIA [None]
